FAERS Safety Report 17860074 (Version 1)
Quarter: 2020Q2

REPORT INFORMATION
  Report Type: Report from Study
  Country: US (occurrence: US)
  Receive Date: 20200604
  Receipt Date: 20200604
  Transmission Date: 20200714
  Serious: No
  Sender: FDA-Public Use
  Company Number: US-INCYTE CORPORATION-2018IN011518

PATIENT

DRUGS (37)
  1. DORZOLAMIDE [Concomitant]
     Active Substance: DORZOLAMIDE
     Indication: VITREOUS FLOATERS
     Dosage: 1 %(V/V), UNK
     Route: 065
     Dates: start: 20181113, end: 20190717
  2. LOSARTAN. [Concomitant]
     Active Substance: LOSARTAN
     Indication: HYPERTENSION
     Dosage: 50 MILLIGRAM, QD
     Route: 065
     Dates: start: 20130206, end: 20190319
  3. HYDRALAZINE [Concomitant]
     Active Substance: HYDRALAZINE HYDROCHLORIDE
     Indication: HYPERTENSION
     Dosage: 100 MILLIGRAM, TID
     Route: 065
     Dates: start: 20110913
  4. LATANOPROST. [Concomitant]
     Active Substance: LATANOPROST
     Indication: GLAUCOMA
     Dosage: 0.005 PERCENT
     Route: 065
     Dates: start: 20100806
  5. ANAGRELIDE. [Concomitant]
     Active Substance: ANAGRELIDE HYDROCHLORIDE
     Dosage: 0.5 MILLIGRAM, BID
     Route: 065
     Dates: start: 20150404, end: 20151002
  6. EMU OIL [Concomitant]
     Active Substance: EMU OIL
     Indication: NEUROPATHY PERIPHERAL
     Dosage: 1 GRAM
     Route: 065
     Dates: start: 20180516
  7. JAKAFI [Suspect]
     Active Substance: RUXOLITINIB
     Indication: MYELOFIBROSIS
     Dosage: 10 MILLIGRAM, BID
     Route: 048
     Dates: start: 20180516, end: 20180621
  8. JAKAFI [Suspect]
     Active Substance: RUXOLITINIB
     Dosage: 20 MILLIGRAM, BID
     Route: 065
     Dates: start: 20181008, end: 20190503
  9. LOSARTAN. [Concomitant]
     Active Substance: LOSARTAN
     Dosage: 100 MILLIGRAM, QD
     Route: 065
     Dates: start: 20190319
  10. RANITIDINE. [Concomitant]
     Active Substance: RANITIDINE
     Indication: GASTROOESOPHAGEAL REFLUX DISEASE
     Dosage: 150 MILLIGRAM, BID
     Route: 065
     Dates: start: 20190319
  11. OMEPRAZOLE. [Concomitant]
     Active Substance: OMEPRAZOLE
     Indication: GASTROOESOPHAGEAL REFLUX DISEASE
     Dosage: 40 MILLIGRAM, QD
     Route: 065
     Dates: start: 20130515
  12. ANAGRELIDE. [Concomitant]
     Active Substance: ANAGRELIDE HYDROCHLORIDE
     Dosage: 0.5 MILLIGRAM, BID
     Route: 065
     Dates: start: 20131203, end: 20141015
  13. AMITRIPTYLINE;GABAPENTIN [Concomitant]
     Indication: NEUROPATHY PERIPHERAL
     Dosage: 1 GRAM
     Route: 065
     Dates: start: 20180516
  14. JAKAFI [Suspect]
     Active Substance: RUXOLITINIB
     Dosage: 15 MILLIGRAM, BID
     Route: 048
     Dates: start: 20180621, end: 20181008
  15. BRINZOLAMIDE [Concomitant]
     Active Substance: BRINZOLAMIDE
     Indication: GLAUCOMA
     Dosage: 1 UNIT DOSE PER ADMINISTRATION
     Route: 065
     Dates: start: 20181023, end: 20181214
  16. DENTA 5000 PLUS [Concomitant]
     Active Substance: SODIUM FLUORIDE
     Indication: NUTRITIONAL SUPPLEMENTATION
     Dosage: 1.1 PERCENT, QD
     Route: 065
     Dates: start: 20170824
  17. FISH OIL;OMEGA-3 FATTY ACIDS [Concomitant]
     Active Substance: FISH OIL\OMEGA-3 FATTY ACIDS
     Indication: NUTRITIONAL SUPPLEMENTATION
     Dosage: 680/2000 MG, QD
     Route: 065
     Dates: start: 20110913
  18. ANAGRELIDE. [Concomitant]
     Active Substance: ANAGRELIDE HYDROCHLORIDE
     Dosage: 0.5 MILLIGRAM, TID
     Route: 065
     Dates: start: 20151002, end: 20160708
  19. RANITIDINE. [Concomitant]
     Active Substance: RANITIDINE
     Dosage: 300 MILLIGRAM, QD
     Route: 065
     Dates: start: 20130515, end: 20180516
  20. AMITRIPTYLINE [Concomitant]
     Active Substance: AMITRIPTYLINE
     Indication: INSOMNIA
     Dosage: 10 MILLIGRAM, QD
     Route: 065
     Dates: start: 20131016, end: 20180516
  21. ANAGRELIDE. [Concomitant]
     Active Substance: ANAGRELIDE HYDROCHLORIDE
     Dosage: 0.5 MILLIGRAM, TID
     Route: 065
     Dates: start: 20101122, end: 20131203
  22. DORZOLAMIDE [Concomitant]
     Active Substance: DORZOLAMIDE
     Indication: IRIDOCYCLITIS
     Dosage: 2 PERCENT, TID
     Route: 065
     Dates: start: 20190321
  23. DORZOLAMIDE [Concomitant]
     Active Substance: DORZOLAMIDE
     Indication: GLAUCOMA
  24. TRAMADOL. [Concomitant]
     Active Substance: TRAMADOL
     Indication: ABDOMINAL PAIN
     Dosage: 50 MILLIGRAM, PRN
     Route: 065
     Dates: start: 20130330
  25. BRIMONIDINE W/TIMOLOL [Concomitant]
     Active Substance: BRIMONIDINE TARTRATE\TIMOLOL MALEATE
     Indication: IRIDOCYCLITIS
     Dosage: 0.2/0.5% BID
     Route: 065
     Dates: start: 20190326
  26. ALLOPURINOL. [Concomitant]
     Active Substance: ALLOPURINOL
     Indication: GOUT
     Dosage: 300 MILLIGRAM, QD
     Route: 065
     Dates: start: 20190412
  27. MULTIVITAMINS;MINERALS [Concomitant]
     Indication: NUTRITIONAL SUPPLEMENTATION
     Dosage: 1 TABLET QD
     Route: 065
     Dates: start: 20150330
  28. ZOLPIDEM [Concomitant]
     Active Substance: ZOLPIDEM TARTRATE
     Indication: INSOMNIA
     Dosage: 5 MILLIGRAM, QD
     Route: 065
     Dates: start: 20160407
  29. ANAGRELIDE. [Concomitant]
     Active Substance: ANAGRELIDE HYDROCHLORIDE
     Indication: ESSENTIAL THROMBOCYTHAEMIA
     Dosage: 0.5 MILLIGRAM
     Route: 065
     Dates: start: 20080208, end: 20101122
  30. ANAGRELIDE. [Concomitant]
     Active Substance: ANAGRELIDE HYDROCHLORIDE
     Dosage: 1.5 MILLIGRAM, QD
     Route: 065
     Dates: start: 20141014, end: 20150404
  31. ACYCLOVIR                          /00587301/ [Concomitant]
     Active Substance: ACYCLOVIR
     Indication: PROPHYLAXIS
     Dosage: 400 MG, UNK
     Route: 065
     Dates: start: 20181231
  32. BENZONATATE. [Concomitant]
     Active Substance: BENZONATATE
     Indication: COUGH
     Dosage: 100 MILLIGRAM, PRN
     Route: 065
     Dates: start: 20171026, end: 20180214
  33. CALCIUM + D3 [CALCIUM;COLECALCIFEROL] [Concomitant]
     Indication: NUTRITIONAL SUPPLEMENTATION
     Dosage: 600 MILLIGRAM, QD
     Route: 065
     Dates: start: 20140326
  34. LIDOCAINE. [Concomitant]
     Active Substance: LIDOCAINE
     Indication: BACK PAIN
     Dosage: 5 PERCENT
     Route: 065
     Dates: start: 20110620
  35. PREDNISOLONE ACETATE. [Concomitant]
     Active Substance: PREDNISOLONE ACETATE
     Indication: SCLERITIS
     Dosage: 1 PERCENT
     Route: 065
     Dates: start: 20190228
  36. ASPIRIN EC [Concomitant]
     Active Substance: ASPIRIN
     Indication: PROPHYLAXIS
     Dosage: UNK UNK, QD
     Route: 065
     Dates: start: 20120918
  37. DICLOFENAC [Concomitant]
     Active Substance: DICLOFENAC
     Indication: ARTHRALGIA
     Dosage: 2-4 G
     Route: 065
     Dates: start: 20170417

REACTIONS (2)
  - White blood cell count increased [Not Recovered/Not Resolved]
  - Disease progression [Not Recovered/Not Resolved]

NARRATIVE: CASE EVENT DATE: 20180516
